FAERS Safety Report 9530819 (Version 2)
Quarter: 2013Q4

REPORT INFORMATION
  Report Type: Spontaneous
  Country: DE (occurrence: DE)
  Receive Date: 20130918
  Receipt Date: 20131002
  Transmission Date: 20140711
  Serious: Yes (Hospitalization)
  Sender: FDA-Public Use
  Company Number: DE-AMGEN-DEUSP2013065214

PATIENT
  Age: 68 Year
  Sex: Male
  Weight: 70 kg

DRUGS (6)
  1. NEULASTA [Suspect]
     Indication: LEUKOPENIA
     Dosage: 6 MG, ^1X^
     Route: 058
     Dates: start: 20130907
  2. RAMIPRIL [Concomitant]
     Dosage: 5 UNK, 1-0-0
     Route: 048
  3. TAMSULOSIN [Concomitant]
     Dosage: 0.4 UNK, 1-0-0
     Route: 048
  4. NITRENDIPIN [Concomitant]
     Dosage: 20 UNK, 1-0-1
     Route: 048
  5. CHEMOTHERAPEUTICS [Concomitant]
     Indication: BRONCHIAL CARCINOMA
     Dosage: UNK
     Dates: start: 20130905
  6. CHEMOTHERAPEUTICS [Concomitant]
     Indication: LUNG NEOPLASM MALIGNANT

REACTIONS (1)
  - Capillary leak syndrome [Recovered/Resolved]
